FAERS Safety Report 6347729-6 (Version None)
Quarter: 2009Q3

REPORT INFORMATION
  Report Type: 
  Country: None (occurrence: None)
  Receive Date: 20090910
  Receipt Date: 20090901
  Transmission Date: 20100115
  Serious: Yes (Death)
  Sender: FDA-Public Use
  Company Number: IT-PFIZER INC-2009164428

PATIENT
  Age: 63 Year

DRUGS (6)
  1. CAMPTOSAR [Suspect]
     Indication: COLON CANCER
     Dosage: 180 MG/M2, 320 MG EVERY 14 DAYS
     Route: 042
     Dates: start: 20090130, end: 20090130
  2. ERBITUX [Suspect]
     Indication: COLON CANCER
     Dosage: 740 MG, WEEKLY
     Route: 042
     Dates: start: 20090130, end: 20090130
  3. TRIMETON [Concomitant]
     Dosage: 10 MG, UNK
     Route: 042
     Dates: start: 20090130, end: 20090130
  4. ATROPINE SULFATE [Concomitant]
     Dosage: 0.5 MG, UNK
     Route: 042
     Dates: start: 20090130, end: 20090130
  5. DEXAMETHASONE PHOSPHATE [Concomitant]
     Dosage: 8 MG, UNK
     Route: 042
     Dates: start: 20090130, end: 20090130
  6. NAVOBAN [Concomitant]
     Dosage: 5 MG, UNK
     Route: 042
     Dates: start: 20090130, end: 20090130

REACTIONS (7)
  - CARDIAC ARREST [None]
  - DIARRHOEA [None]
  - HYPERHIDROSIS [None]
  - HYPERTENSION [None]
  - PULMONARY OEDEMA [None]
  - RESPIRATORY FAILURE [None]
  - TACHYCARDIA [None]
